FAERS Safety Report 13054339 (Version 1)
Quarter: 2016Q4

REPORT INFORMATION
  Report Type: Spontaneous
  Country: SE (occurrence: SE)
  Receive Date: 20161222
  Receipt Date: 20161222
  Transmission Date: 20170207
  Serious: Yes (Other)
  Sender: FDA-Public Use
  Company Number: SE-TEVA-719971ACC

PATIENT
  Age: 70 Year
  Sex: Female

DRUGS (1)
  1. ATENOLOL ACTAVIS [Suspect]
     Active Substance: ATENOLOL
     Dates: end: 201610

REACTIONS (2)
  - Gait disturbance [Not Recovered/Not Resolved]
  - Peroneal nerve palsy [Not Recovered/Not Resolved]
